FAERS Safety Report 12176335 (Version 1)
Quarter: 2016Q1

REPORT INFORMATION
  Report Type: Spontaneous
  Country: DK (occurrence: DK)
  Receive Date: 20160315
  Receipt Date: 20160315
  Transmission Date: 20160526
  Serious: Yes (Hospitalization)
  Sender: FDA-Public Use
  Company Number: PHHY2016DK029426

PATIENT
  Age: 30 Year
  Sex: Female

DRUGS (1)
  1. VENLAFAXINE [Suspect]
     Active Substance: VENLAFAXINE HYDROCHLORIDE
     Indication: DEPRESSION
     Route: 048
     Dates: start: 20120423

REACTIONS (18)
  - Hypoaesthesia [Unknown]
  - Mydriasis [Recovered/Resolved]
  - Disturbance in attention [Not Recovered/Not Resolved]
  - Photophobia [Unknown]
  - Diplopia [Unknown]
  - Aphasia [Unknown]
  - Subarachnoid haemorrhage [Recovered/Resolved with Sequelae]
  - Cognitive disorder [Not Recovered/Not Resolved]
  - Memory impairment [Unknown]
  - Clumsiness [Unknown]
  - Nausea [Unknown]
  - Brain injury [Unknown]
  - Hyperacusis [Not Recovered/Not Resolved]
  - Pupils unequal [Recovered/Resolved]
  - Fatigue [Not Recovered/Not Resolved]
  - Migraine [Not Recovered/Not Resolved]
  - Stress [Not Recovered/Not Resolved]
  - Vision blurred [Not Recovered/Not Resolved]

NARRATIVE: CASE EVENT DATE: 2012
